FAERS Safety Report 23693700 (Version 1)
Quarter: 2024Q2

REPORT INFORMATION
  Report Type: Spontaneous
  Country: US (occurrence: US)
  Receive Date: 20240401
  Receipt Date: 20240401
  Transmission Date: 20240716
  Serious: No
  Sender: FDA-Public Use
  Company Number: US-ABBVIE-5698234

PATIENT
  Sex: Female

DRUGS (1)
  1. POLYTRIM [Suspect]
     Active Substance: POLYMYXIN B SULFATE\TRIMETHOPRIM SULFATE
     Indication: Product used for unknown indication
     Route: 047

REACTIONS (1)
  - Hypersensitivity [Unknown]
